FAERS Safety Report 12360578 (Version 1)
Quarter: 2016Q2

REPORT INFORMATION
  Report Type: Report from Study
  Country: US (occurrence: US)
  Receive Date: 20160512
  Receipt Date: 20160512
  Transmission Date: 20160815
  Serious: Yes (Other)
  Sender: FDA-Public Use
  Company Number: US-ABBVIE-16P-163-1623278-00

PATIENT
  Age: 39 Year
  Sex: Female

DRUGS (1)
  1. LUPRON DEPOT [Suspect]
     Active Substance: LEUPROLIDE ACETATE
     Indication: ENDOMETRIOSIS
     Route: 050
     Dates: start: 2006

REACTIONS (17)
  - Abdominal pain [Not Recovered/Not Resolved]
  - Supraventricular tachycardia [Recovered/Resolved]
  - Ventricular extrasystoles [Not Recovered/Not Resolved]
  - Night sweats [Recovered/Resolved]
  - Gastrointestinal pain [Not Recovered/Not Resolved]
  - Exposure during pregnancy [Unknown]
  - Abdominal discomfort [Not Recovered/Not Resolved]
  - Abdominal distension [Not Recovered/Not Resolved]
  - Oophorectomy [Not Recovered/Not Resolved]
  - Mammoplasty [Recovered/Resolved]
  - Hot flush [Recovered/Resolved]
  - Endometriosis [Not Recovered/Not Resolved]
  - Mood swings [Recovered/Resolved]
  - Vitamin D decreased [Not Recovered/Not Resolved]
  - Ventricular tachycardia [Not Recovered/Not Resolved]
  - Anaemia [Not Recovered/Not Resolved]
  - Mucous stools [Not Recovered/Not Resolved]

NARRATIVE: CASE EVENT DATE: 2006
